FAERS Safety Report 19017329 (Version 3)
Quarter: 2021Q2

REPORT INFORMATION
  Report Type: Spontaneous
  Country: JP (occurrence: JP)
  Receive Date: 20210317
  Receipt Date: 20210428
  Transmission Date: 20210717
  Serious: Yes (Hospitalization, Other)
  Sender: FDA-Public Use
  Company Number: JP-BAUSCH-BL-2021-007865

PATIENT
  Age: 76 Year
  Sex: Female
  Weight: 57 kg

DRUGS (2)
  1. LUMICEF [Suspect]
     Active Substance: BRODALUMAB
     Dosage: SYRINGE
     Route: 058
     Dates: start: 20210226
  2. LUMICEF [Suspect]
     Active Substance: BRODALUMAB
     Indication: PSORIASIS
     Dosage: SYRINGE
     Route: 058
     Dates: start: 2014, end: 20210127

REACTIONS (2)
  - Atrial fibrillation [Not Recovered/Not Resolved]
  - Cerebral haemorrhage [Unknown]

NARRATIVE: CASE EVENT DATE: 20210128
